FAERS Safety Report 5875834-7 (Version None)
Quarter: 2008Q3

REPORT INFORMATION
  Report Type: 
  Country: None (occurrence: None)
  Receive Date: 20080909
  Receipt Date: 20080828
  Transmission Date: 20090109
  Serious: Yes (Other)
  Sender: FDA-Public Use
  Company Number: JP-PFIZER INC-2008072788

PATIENT

DRUGS (2)
  1. VIBRAMYCIN [Suspect]
     Route: 048
  2. ZYPREXA [Concomitant]

REACTIONS (1)
  - STEVENS-JOHNSON SYNDROME [None]
